FAERS Safety Report 17310777 (Version 1)
Quarter: 2020Q1

REPORT INFORMATION
  Report Type: Spontaneous
  Country: US (occurrence: US)
  Receive Date: 20200123
  Receipt Date: 20200123
  Transmission Date: 20200409
  Serious: No
  Sender: FDA-Public Use
  Company Number: US-ROCHE-2258465

PATIENT
  Age: 59 Year
  Sex: Female
  Weight: 64.92 kg

DRUGS (8)
  1. PRASUGREL. [Concomitant]
     Active Substance: PRASUGREL
     Route: 065
  2. SAVELLA [Concomitant]
     Active Substance: MILNACIPRAN HYDROCHLORIDE
     Route: 065
  3. METOPROLOL. [Concomitant]
     Active Substance: METOPROLOL
     Route: 065
  4. RITUXAN [Suspect]
     Active Substance: RITUXIMAB
     Indication: RHEUMATOID ARTHRITIS
     Route: 042
     Dates: start: 20190107
  5. BENADRYL [Concomitant]
     Active Substance: DIPHENHYDRAMINE HYDROCHLORIDE
     Indication: PREMEDICATION
     Route: 065
  6. RITUXAN [Suspect]
     Active Substance: RITUXIMAB
     Dosage: SECOND DOSE
     Route: 042
     Dates: start: 20190121
  7. LOSARTAN. [Concomitant]
     Active Substance: LOSARTAN
     Indication: HYPERTENSION
     Dosage: ONGOING:YES
     Route: 065
  8. XANAX [Concomitant]
     Active Substance: ALPRAZOLAM
     Indication: INSOMNIA
     Route: 065

REACTIONS (2)
  - Sensory disturbance [Recovering/Resolving]
  - Flushing [Recovered/Resolved]

NARRATIVE: CASE EVENT DATE: 20190107
